FAERS Safety Report 9466170 (Version 2)
Quarter: 2013Q3

REPORT INFORMATION
  Report Type: Spontaneous
  Country: US (occurrence: US)
  Receive Date: 20130820
  Receipt Date: 20130823
  Transmission Date: 20140515
  Serious: Yes (Hospitalization)
  Sender: FDA-Public Use
  Company Number: US-BAXTER-2013BAX032454

PATIENT
  Sex: Male

DRUGS (1)
  1. DIANEAL LOW CALCIUM [Suspect]
     Indication: PERITONEAL DIALYSIS
     Dosage: 4 CYCLES
     Route: 033
     Dates: start: 200910

REACTIONS (2)
  - Hip fracture [Recovering/Resolving]
  - Fall [Recovering/Resolving]
